FAERS Safety Report 6428303-X (Version None)
Quarter: 2009Q4

REPORT INFORMATION
  Report Type: 
  Country: None (occurrence: None)
  Receive Date: 20091030
  Receipt Date: 20091026
  Transmission Date: 20100525
  Serious: Yes (Other)
  Sender: FDA-Public Use
  Company Number: ADR49152009

PATIENT
  Sex: Female

DRUGS (1)
  1. SALBUTAMOL SULPHATE (MFR: UNKNOWN) [Suspect]
     Indication: ASTHMA
     Dosage: INHALATION USE
     Route: 055

REACTIONS (2)
  - ASTHMA [None]
  - CYANOSIS [None]
